FAERS Safety Report 14091061 (Version 1)
Quarter: 2017Q4

REPORT INFORMATION
  Report Type: Spontaneous
  Country: US (occurrence: US)
  Receive Date: 20171016
  Receipt Date: 20171016
  Transmission Date: 20180321
  Serious: No
  Sender: FDA-Public Use
  Company Number: US-009507513-1710USA005508

PATIENT
  Age: 59 Year
  Sex: Male

DRUGS (5)
  1. VANCOMYCIN [Concomitant]
     Active Substance: VANCOMYCIN
     Indication: PARANEOPLASTIC PEMPHIGUS
  2. CEFEPIME [Concomitant]
     Active Substance: CEFEPIME HYDROCHLORIDE
     Indication: PARANEOPLASTIC PEMPHIGUS
  3. HEXADROL [Suspect]
     Active Substance: DEXAMETHASONE
     Indication: PARANEOPLASTIC PEMPHIGUS
     Route: 048
  4. MICAFUNGIN [Concomitant]
     Active Substance: MICAFUNGIN
     Indication: PARANEOPLASTIC PEMPHIGUS
  5. VALACYCLOVIR HYDROCHLORIDE. [Concomitant]
     Active Substance: VALACYCLOVIR HYDROCHLORIDE
     Indication: PARANEOPLASTIC PEMPHIGUS

REACTIONS (1)
  - Drug ineffective [Unknown]
